FAERS Safety Report 17450069 (Version 1)
Quarter: 2020Q1

REPORT INFORMATION
  Report Type: Spontaneous
  Country: CA (occurrence: CA)
  Receive Date: 20200215
  Receipt Date: 20200215
  Transmission Date: 20200409
  Serious: Yes (Other)
  Sender: FDA-Public Use
  Company Number: None

PATIENT
  Age: 65 Year
  Sex: Female
  Weight: 72 kg

DRUGS (3)
  1. RMFLEX 850MG. [Suspect]
     Active Substance: DIETARY SUPPLEMENT
     Indication: MYALGIA
     Dosage: ?          QUANTITY:2 TABLET(S);?
     Route: 048
     Dates: start: 20200123, end: 20200214
  2. MAGNESIUM GLYCINATE [Concomitant]
     Active Substance: MAGNESIUM GLYCINATE
  3. RMFLEX 850MG. [Suspect]
     Active Substance: DIETARY SUPPLEMENT
     Indication: ARTHRALGIA
     Dosage: ?          QUANTITY:2 TABLET(S);?
     Route: 048
     Dates: start: 20200123, end: 20200214

REACTIONS (3)
  - Product formulation issue [None]
  - Product use complaint [None]
  - Muscle spasms [None]

NARRATIVE: CASE EVENT DATE: 20200212
